FAERS Safety Report 10169415 (Version 5)
Quarter: 2014Q4

REPORT INFORMATION
  Report Type: Spontaneous
  Country: US (occurrence: US)
  Receive Date: 20140513
  Receipt Date: 20141001
  Transmission Date: 20150528
  Serious: Yes (Other)
  Sender: FDA-Public Use
  Company Number: US-PFIZER INC-2014129312

PATIENT
  Age: 70 Year
  Sex: Male

DRUGS (14)
  1. LOVASTATIN. [Concomitant]
     Active Substance: LOVASTATIN
     Dosage: 40 MG, UNK (1 TABLET)
     Route: 048
  2. IRON [Concomitant]
     Active Substance: IRON
     Dosage: 100 MG, DAILY
     Route: 048
     Dates: start: 20140423
  3. VITAMINE C [Concomitant]
     Dosage: 250 MG, DAILY
     Route: 048
     Dates: start: 20140423
  4. IRON [Concomitant]
     Active Substance: IRON
     Dosage: 100 MG DAILY
     Route: 048
     Dates: start: 20140603
  5. VITAMINE B12 [Concomitant]
     Dosage: 25 UG, DAILY
     Route: 048
     Dates: start: 20140423
  6. ASPIRIN. [Concomitant]
     Active Substance: ASPIRIN
     Dosage: 81 MG, DAILY (1 TAB EVERY DAY)
     Route: 048
  7. HYDROCODONE/PARACETAMOL [Concomitant]
     Indication: PAIN
     Dosage: 5-325 MG TAB 1 - 2 TABS EVERY 4 HOURS PRN
     Route: 048
     Dates: start: 20140211
  8. NIACIN. [Concomitant]
     Active Substance: NIACIN
     Dosage: 250 MG, DAILY (1 TABLET EVERY DAY)
     Route: 048
  9. INLYTA [Suspect]
     Active Substance: AXITINIB
     Indication: RENAL CELL CARCINOMA
     Dosage: 5 MG, 2X/DAY
     Route: 048
     Dates: start: 20140417, end: 2014
  10. HYDROCODONE/PARACETAMOL [Concomitant]
     Dosage: 5-325 MG TAB 1 - 2 TABS EVERY 4 HOURS PRN
     Route: 048
     Dates: start: 20140314
  11. HYDROCODONE/PARACETAMOL [Concomitant]
     Dosage: 5-325 MG 1 TAB EVERY 4 HOURS PRN
     Route: 048
     Dates: start: 20140702
  12. OMEGA-3 FATTY ACIDS [Concomitant]
     Active Substance: OMEGA-3 FATTY ACIDS
     Dosage: UNK, EVERY DAY
     Route: 048
  13. FOLIC ACID. [Concomitant]
     Active Substance: FOLIC ACID
     Dosage: 1 MG, DAILY
     Route: 048
     Dates: start: 20140423
  14. VITAMINE C [Concomitant]
     Dosage: 250 MG, DAILY
     Route: 048
     Dates: start: 20140603

REACTIONS (5)
  - Palmar-plantar erythrodysaesthesia syndrome [Not Recovered/Not Resolved]
  - Urinary tract infection [Recovered/Resolved]
  - Disease progression [Unknown]
  - Renal cell carcinoma [Unknown]
  - Blood pressure increased [Not Recovered/Not Resolved]

NARRATIVE: CASE EVENT DATE: 2014
